FAERS Safety Report 7545605-4 (Version None)
Quarter: 2011Q2

REPORT INFORMATION
  Report Type: 
  Country: None (occurrence: None)
  Receive Date: 20110525
  Receipt Date: 20110228
  Transmission Date: 20111010
  Serious: No
  Sender: FDA-Public Use
  Company Number: 324373

PATIENT
  Sex: Female

DRUGS (2)
  1. VICTOZA [Suspect]
     Indication: PRODUCT USED FOR UNKNOWN INDICATION
     Dosage: 1.8 MG, QD, SUBCUTANEOUS
     Route: 058
  2. INSULIN (INSULIN) [Concomitant]

REACTIONS (3)
  - BACK PAIN [None]
  - VISION BLURRED [None]
  - SOMNOLENCE [None]
